FAERS Safety Report 9476310 (Version 1)
Quarter: 2013Q3

REPORT INFORMATION
  Report Type: Report from Study
  Country: FR (occurrence: FR)
  Receive Date: 20130826
  Receipt Date: 20130826
  Transmission Date: 20140515
  Serious: Yes (Hospitalization)
  Sender: FDA-Public Use
  Company Number: FR-ROCHE-1264412

PATIENT
  Age: 57 Year
  Sex: Male
  Weight: 70 kg

DRUGS (5)
  1. METHOXY POLYETHYLENE GLYCOL-EPOETIN BETA [Suspect]
     Indication: ANAEMIA POSTOPERATIVE
     Route: 065
  2. MYCOPHENOLATE MOFETIL [Concomitant]
     Indication: IMMUNOSUPPRESSION
     Route: 048
     Dates: start: 19941210
  3. NEORAL [Concomitant]
     Indication: IMMUNOSUPPRESSION
     Route: 042
  4. SOLUPRED (FRANCE) [Concomitant]
     Indication: IMMUNOSUPPRESSION
     Route: 048
     Dates: start: 19941211
  5. LERCAN [Concomitant]
     Indication: HYPERTENSION
     Route: 048
     Dates: start: 20130731

REACTIONS (1)
  - Focal segmental glomerulosclerosis [Not Recovered/Not Resolved]
